FAERS Safety Report 12256722 (Version 1)
Quarter: 2016Q2

REPORT INFORMATION
  Report Type: Spontaneous
  Country: US (occurrence: US)
  Receive Date: 20160412
  Receipt Date: 20160412
  Transmission Date: 20160815
  Serious: No
  Sender: FDA-Public Use
  Company Number: US-PFIZER INC-2015347860

PATIENT
  Age: 37 Year
  Sex: Female

DRUGS (11)
  1. LYRICA [Suspect]
     Active Substance: PREGABALIN
     Indication: CERVICAL RADICULOPATHY
     Dosage: 100 MG, 2X/DAY
  2. HYDROCODONE [Concomitant]
     Active Substance: HYDROCODONE
  3. GABAPENTIN. [Concomitant]
     Active Substance: GABAPENTIN
  4. TOPAMAX [Concomitant]
     Active Substance: TOPIRAMATE
  5. FIORICET [Concomitant]
     Active Substance: ACETAMINOPHEN\BUTALBITAL\CAFFEINE
  6. IMITREX [Concomitant]
     Active Substance: SUMATRIPTAN SUCCINATE
  7. MELOXICAM. [Concomitant]
     Active Substance: MELOXICAM
  8. REMERON [Concomitant]
     Active Substance: MIRTAZAPINE
  9. ZANAFLEX [Concomitant]
     Active Substance: TIZANIDINE HYDROCHLORIDE
  10. XANAX [Concomitant]
     Active Substance: ALPRAZOLAM
  11. CYMBALTA [Concomitant]
     Active Substance: DULOXETINE HYDROCHLORIDE

REACTIONS (1)
  - Muscle spasms [Unknown]
